FAERS Safety Report 18270050 (Version 1)
Quarter: 2020Q3

REPORT INFORMATION
  Report Type: Spontaneous
  Country: US (occurrence: US)
  Receive Date: 20200916
  Receipt Date: 20200916
  Transmission Date: 20201103
  Serious: Yes (Life-Threatening, Hospitalization, Other)
  Sender: FDA-Public Use
  Company Number: US-LUPIN PHARMACEUTICALS INC.-2020-05916

PATIENT
  Age: 42 Year
  Sex: Male

DRUGS (7)
  1. IMMUNOGLOBULIN HUMAN [Concomitant]
     Active Substance: HUMAN IMMUNOGLOBULIN G
     Indication: COVID-19
     Dosage: UNK
     Route: 042
     Dates: start: 2020, end: 2020
  2. METHYLPREDNISOLONE. [Suspect]
     Active Substance: METHYLPREDNISOLONE
     Indication: COVID-19
     Dosage: 100 MILLIGRAM, ON DAY 11
     Route: 065
     Dates: end: 2020
  3. FLUTICASONE. [Suspect]
     Active Substance: FLUTICASONE
     Dosage: 88 MICROGRAM, QD
     Route: 065
  4. FLUTICASONE. [Suspect]
     Active Substance: FLUTICASONE
     Indication: COUGH VARIANT ASTHMA
     Dosage: 44 MICROGRAM, QD
     Route: 065
     Dates: start: 2017
  5. METHYLPREDNISOLONE. [Suspect]
     Active Substance: METHYLPREDNISOLONE
     Dosage: 125 MILLIGRAM, ON DAYS 12 AND 13
     Route: 065
     Dates: start: 2020
  6. LOPINAVIR/RITONAVIR [Concomitant]
     Active Substance: LOPINAVIR\RITONAVIR
     Indication: COVID-19
     Dosage: 400 MILLIGRAM, BID, FORM DAY 10 TO DAY 17
     Route: 065
     Dates: start: 2020, end: 2020
  7. REMDESIVIR. [Concomitant]
     Active Substance: REMDESIVIR
     Indication: COVID-19
     Dosage: UNK
     Route: 065
     Dates: start: 2020, end: 2020

REACTIONS (4)
  - Respiratory failure [Recovered/Resolved]
  - Lymphopenia [Recovering/Resolving]
  - Off label use [Unknown]
  - Acute respiratory failure [Recovering/Resolving]

NARRATIVE: CASE EVENT DATE: 2020
